APPROVED DRUG PRODUCT: LAMIVUDINE
Active Ingredient: LAMIVUDINE
Strength: 10MG/ML
Dosage Form/Route: SOLUTION;ORAL
Application: A203564 | Product #001 | TE Code: AA
Applicant: CHARTWELL MOLECULAR HOLDINGS LLC
Approved: Oct 31, 2014 | RLD: No | RS: No | Type: RX